FAERS Safety Report 19426642 (Version 1)
Quarter: 2021Q2

REPORT INFORMATION
  Report Type: Spontaneous
  Country: US (occurrence: US)
  Receive Date: 20210616
  Receipt Date: 20210616
  Transmission Date: 20210717
  Serious: Yes (Hospitalization, Other)
  Sender: FDA-Public Use
  Company Number: US-SA-2021SA198178

PATIENT
  Age: 85 Year
  Sex: Male

DRUGS (9)
  1. PREDNISONE. [Concomitant]
     Active Substance: PREDNISONE
     Dosage: UNK
  2. PLAVIX [Suspect]
     Active Substance: CLOPIDOGREL BISULFATE
     Dosage: UNK
  3. BABY ASPIRIN [Concomitant]
     Active Substance: ASPIRIN
     Dosage: UNK
  4. ELIQUIS [Suspect]
     Active Substance: APIXABAN
     Indication: ATRIAL FIBRILLATION
     Dosage: 5 MG, BID
     Route: 048
     Dates: end: 20210527
  5. SOTALOL. [Concomitant]
     Active Substance: SOTALOL
     Dosage: UNK
  6. VALSARTAN. [Concomitant]
     Active Substance: VALSARTAN
     Dosage: UNK
  7. COUMADIN [Suspect]
     Active Substance: WARFARIN SODIUM
     Dosage: UNK
  8. CRESTOR [Concomitant]
     Active Substance: ROSUVASTATIN CALCIUM
     Dosage: UNK
  9. SYNTHROID [Concomitant]
     Active Substance: LEVOTHYROXINE SODIUM
     Dosage: UNK

REACTIONS (10)
  - Thrombosis [Unknown]
  - Gastric disorder [Unknown]
  - Contusion [Recovering/Resolving]
  - Abdominal pain [Unknown]
  - Dyspnoea [Unknown]
  - Abdominal distension [Unknown]
  - Amnesia [Unknown]
  - Dementia [Unknown]
  - Coronary artery disease [Unknown]
  - Agitation [Unknown]
